FAERS Safety Report 10780764 (Version 1)
Quarter: 2015Q1

REPORT INFORMATION
  Report Type: Spontaneous
  Country: FR (occurrence: FR)
  Receive Date: 20150210
  Receipt Date: 20150210
  Transmission Date: 20150721
  Serious: Yes (Other)
  Sender: FDA-Public Use
  Company Number: FR-IMPAX LABORATORIES, INC-2015-IPXL-00102

PATIENT
  Age: 44 Year
  Sex: Male

DRUGS (5)
  1. BACLOFEN. [Suspect]
     Active Substance: BACLOFEN
     Indication: ALCOHOLISM
     Dosage: UNK, DAILY (INCREASED TO 1 ADDITIONAL 10 MG TABLET EVERY 3 DAYS)
     Route: 065
     Dates: start: 20110819
  2. BACLOFEN. [Suspect]
     Active Substance: BACLOFEN
     Dosage: 250 MG, DAILY
     Route: 065
  3. BACLOFEN. [Suspect]
     Active Substance: BACLOFEN
     Dosage: 420 MG, DAILY
     Route: 065
  4. BACLOFEN. [Suspect]
     Active Substance: BACLOFEN
     Dosage: 400 MG, DAILY
     Route: 065
  5. BACLOFEN. [Suspect]
     Active Substance: BACLOFEN
     Dosage: 370 MG, DAILY
     Route: 065

REACTIONS (6)
  - Ankle fracture [Unknown]
  - Fall [Unknown]
  - Condition aggravated [Unknown]
  - Intentional overdose [Unknown]
  - Delirium [Unknown]
  - Somnambulism [Unknown]
